FAERS Safety Report 4943552-5 (Version None)
Quarter: 2006Q1

REPORT INFORMATION
  Report Type: 
  Country: None (occurrence: None)
  Receive Date: 20060314
  Receipt Date: 20050913
  Transmission Date: 20060701
  Serious: Yes (Death, Other)
  Sender: FDA-Public Use
  Company Number: FR-BRISTOL-MYERS SQUIBB COMPANY-13112255

PATIENT
  Age: 44 Year
  Sex: Female
  Weight: 57 kg

DRUGS (2)
  1. TAXOL [Suspect]
     Route: 042
     Dates: start: 20050601
  2. GEMZAR [Concomitant]
     Route: 042

REACTIONS (2)
  - MALIGNANT NEOPLASM PROGRESSION [None]
  - NEUROPATHY PERIPHERAL [None]
